FAERS Safety Report 6519924-4 (Version None)
Quarter: 2009Q4

REPORT INFORMATION
  Report Type: 
  Country: None (occurrence: None)
  Receive Date: 20091229
  Receipt Date: 20091218
  Transmission Date: 20100525
  Serious: Yes (Hospitalization)
  Sender: FDA-Public Use
  Company Number: US-BIOGENIDEC-2009BI020870

PATIENT
  Age: 61 Year
  Sex: Female

DRUGS (2)
  1. AVONEX [Suspect]
     Indication: MULTIPLE SCLEROSIS
     Route: 030
     Dates: start: 19990101, end: 20030901
  2. AVONEX [Suspect]
     Route: 030
     Dates: start: 20030901

REACTIONS (3)
  - ATRIAL FIBRILLATION [None]
  - OSTEONECROSIS [None]
  - PAIN IN EXTREMITY [None]
